FAERS Safety Report 10480206 (Version 2)
Quarter: 2014Q3

REPORT INFORMATION
  Report Type: Report from Study
  Country: JP (occurrence: JP)
  Receive Date: 20140929
  Receipt Date: 20140929
  Transmission Date: 20150326
  Serious: Yes (Death)
  Sender: FDA-Public Use
  Company Number: JP-BRISTOL-MYERS SQUIBB COMPANY-14078828

PATIENT
  Age: 50 Year
  Sex: Male

DRUGS (3)
  1. LACTULOSE. [Concomitant]
     Active Substance: LACTULOSE
     Route: 048
     Dates: start: 20071026, end: 20071110
  2. L-CYSTEINE ETHYL ESTER HCL [Concomitant]
     Indication: HEPATITIS FULMINANT
     Dates: start: 20071025
  3. BARACLUDE [Suspect]
     Active Substance: ENTECAVIR
     Indication: HEPATITIS B
     Route: 048
     Dates: start: 20071025, end: 20071110

REACTIONS (1)
  - Acute hepatic failure [Fatal]
